FAERS Safety Report 16403128 (Version 1)
Quarter: 2019Q2

REPORT INFORMATION
  Report Type: Report from Study
  Country: US (occurrence: US)
  Receive Date: 20190607
  Receipt Date: 20190607
  Transmission Date: 20190711
  Serious: Yes (Other)
  Sender: FDA-Public Use
  Company Number: PHEH2019US023255

PATIENT
  Age: 38 Year
  Sex: Female

DRUGS (1)
  1. COSENTYX [Suspect]
     Active Substance: SECUKINUMAB
     Indication: PSORIATIC ARTHROPATHY
     Dosage: 1 DF (PEN), Q4W
     Route: 058

REACTIONS (4)
  - Vision blurred [Unknown]
  - Blindness transient [Unknown]
  - Blood glucose abnormal [Unknown]
  - Arthritis [Unknown]
